FAERS Safety Report 9876881 (Version 3)
Quarter: 2014Q4

REPORT INFORMATION
  Report Type: Spontaneous
  Country: TW (occurrence: None)
  Receive Date: 20140204
  Receipt Date: 20141128
  Transmission Date: 20150529
  Serious: Yes (Other)
  Sender: FDA-Public Use
  Company Number: 1402-0248

PATIENT
  Age: 69 Year
  Sex: Female

DRUGS (3)
  1. EYLEA [Suspect]
     Active Substance: AFLIBERCEPT
     Indication: NEOVASCULAR AGE-RELATED MACULAR DEGENERATION
     Dosage: 2MG, 1 IN 1M, INTRAOCULAR
     Route: 031
     Dates: start: 20131128, end: 20131128
  2. PREDNISOLON (PREDNISOLONE) [Concomitant]
  3. TROPICAMIDE (TROPICAMIDE) [Suspect]
     Active Substance: TROPICAMIDE
     Indication: PRODUCT USED FOR UNKNOWN INDICATION
     Dosage: 2 MG, 1 IN 1 M, INTRAOCULAR

REACTIONS (2)
  - Angle closure glaucoma [None]
  - Visual acuity reduced [None]

NARRATIVE: CASE EVENT DATE: 20131227
